FAERS Safety Report 21392378 (Version 1)
Quarter: 2022Q3

REPORT INFORMATION
  Report Type: Spontaneous
  Country: US (occurrence: US)
  Receive Date: 20220929
  Receipt Date: 20220929
  Transmission Date: 20221026
  Serious: Yes (Death, Hospitalization)
  Sender: FDA-Public Use
  Company Number: US-ELI_LILLY_AND_COMPANY-US202209012334

PATIENT
  Age: 69 Year
  Sex: Male
  Weight: 49.44 kg

DRUGS (1)
  1. BEBTELOVIMAB [Suspect]
     Active Substance: BEBTELOVIMAB
     Indication: COVID-19
     Dosage: 175 MG, SINGLE
     Route: 042
     Dates: start: 20220913, end: 20220913

REACTIONS (6)
  - Cough [Fatal]
  - Blood pressure diastolic decreased [Fatal]
  - Respiratory rate increased [Fatal]
  - Wheezing [Fatal]
  - Oxygen saturation decreased [Fatal]
  - COVID-19 [Fatal]

NARRATIVE: CASE EVENT DATE: 20220913
